FAERS Safety Report 7068909-0 (Version None)
Quarter: 2010Q4

REPORT INFORMATION
  Report Type: 
  Country: None (occurrence: None)
  Receive Date: 20101028
  Receipt Date: 20101019
  Transmission Date: 20110411
  Serious: Yes (Other)
  Sender: FDA-Public Use
  Company Number: US-PERRIGO-10US014084

PATIENT
  Sex: Female
  Weight: 54.422 kg

DRUGS (2)
  1. TIOCONAZOLE 6.5% 426 [Suspect]
     Indication: VULVOVAGINAL MYCOTIC INFECTION
     Dosage: 1 APPLICATOR, ONCE
     Route: 067
     Dates: start: 20100828, end: 20100828
  2. CONTRACEPTIVES NOS [Concomitant]
     Indication: CONTRACEPTION
     Dosage: 1 DAILY
     Route: 048

REACTIONS (3)
  - HYPERSENSITIVITY [None]
  - SKIN IRRITATION [None]
  - VAGINAL SWELLING [None]
